FAERS Safety Report 9293829 (Version 2)
Quarter: 2013Q2

REPORT INFORMATION
  Report Type: Spontaneous
  Country: DK (occurrence: DK)
  Receive Date: 20130516
  Receipt Date: 20130617
  Transmission Date: 20140414
  Serious: Yes (Hospitalization, Other)
  Sender: FDA-Public Use
  Company Number: PHHY2013DK047709

PATIENT
  Age: 67 Year
  Sex: Female

DRUGS (4)
  1. AMIODARONE [Suspect]
  2. DABIGATRAN ETEXILATE [Interacting]
  3. FOLIC ACID [Concomitant]
  4. IRON [Concomitant]

REACTIONS (11)
  - Gastrointestinal haemorrhage [Recovered/Resolved]
  - Diarrhoea [Recovered/Resolved]
  - Haematochezia [Recovered/Resolved]
  - Abdominal wall haemorrhage [Recovered/Resolved]
  - Thrombosis [Recovered/Resolved]
  - Haemorrhage [Recovered/Resolved]
  - Gastrointestinal angiodysplasia [Recovered/Resolved]
  - Intestinal varices [Recovered/Resolved]
  - Anaemia [Recovered/Resolved]
  - Atrial fibrillation [Recovered/Resolved]
  - Drug interaction [Unknown]
